FAERS Safety Report 6905816-5 (Version None)
Quarter: 2010Q3

REPORT INFORMATION
  Report Type: 
  Country: None (occurrence: None)
  Receive Date: 20100803
  Receipt Date: 20100803
  Transmission Date: 20110219
  Serious: Yes (Hospitalization)
  Sender: FDA-Public Use
  Company Number: None

PATIENT
  Sex: Male
  Weight: 74.84 kg

DRUGS (2)
  1. FENTANYL CITRATE [Suspect]
     Indication: PAIN MANAGEMENT
     Dosage: 120 MCG IT
     Route: 037
  2. FENTANYL CITRATE + BUPIVACAINE 3 MCG/ML BAXTER [Suspect]

REACTIONS (2)
  - INCORRECT DOSE ADMINISTERED [None]
  - MEDICATION ERROR [None]
